FAERS Safety Report 9262803 (Version 1)
Quarter: 2013Q2

REPORT INFORMATION
  Report Type: Report from Study
  Country: AR (occurrence: AR)
  Receive Date: 20130430
  Receipt Date: 20130430
  Transmission Date: 20140414
  Serious: Yes (Other)
  Sender: FDA-Public Use
  Company Number: PHHY2013AR041333

PATIENT
  Age: 70 Year
  Sex: Female

DRUGS (4)
  1. ONBREZ [Suspect]
     Indication: CHRONIC OBSTRUCTIVE PULMONARY DISEASE
     Dosage: 150 UG, DAILY
  2. VOLTAREN [Suspect]
     Indication: NECK PAIN
  3. EXFORGE [Suspect]
  4. DIOVAN [Suspect]

REACTIONS (2)
  - Bronchitis [Recovering/Resolving]
  - Malaise [Recovering/Resolving]
